FAERS Safety Report 5386512-5 (Version None)
Quarter: 2007Q3

REPORT INFORMATION
  Report Type: 
  Country: None (occurrence: None)
  Receive Date: 20070713
  Receipt Date: 20070503
  Transmission Date: 20080115
  Serious: Yes (Other)
  Sender: FDA-Public Use
  Company Number: FI-BAYER-200712552GDS

PATIENT
  Age: 72 Year
  Sex: Female

DRUGS (2)
  1. NEXAVAR [Suspect]
     Indication: NEOPLASM MALIGNANT
     Dosage: AS USED: 200 MG
     Route: 048
     Dates: start: 20070415, end: 20070501
  2. NEXAVAR [Suspect]
     Dosage: AS USED: 200 MG
     Route: 048
     Dates: start: 20070501

REACTIONS (6)
  - BACK PAIN [None]
  - DIARRHOEA [None]
  - PALMAR-PLANTAR ERYTHRODYSAESTHESIA SYNDROME [None]
  - SKIN ATROPHY [None]
  - SKIN DISCOLOURATION [None]
  - VISUAL ACUITY REDUCED [None]
